FAERS Safety Report 6058439-7 (Version None)
Quarter: 2009Q1

REPORT INFORMATION
  Report Type: 
  Country: None (occurrence: None)
  Receive Date: 20090130
  Receipt Date: 20090119
  Transmission Date: 20090719
  Serious: Yes (Other)
  Sender: FDA-Public Use
  Company Number: DK-NOVOPROD-283569

PATIENT
  Age: 67 Year
  Sex: Female

DRUGS (3)
  1. VAGIFEM [Suspect]
     Indication: DRUG USE FOR UNKNOWN INDICATION
     Dates: start: 20080903, end: 20081028
  2. HJERTEMAGNYL                       /00228701/ [Concomitant]
     Dosage: 75 MG, QD
     Dates: start: 20081030
  3. SIMVASTATIN [Concomitant]
     Dosage: 40 MG, UNK
     Dates: start: 20081030

REACTIONS (1)
  - RETINAL VASCULAR THROMBOSIS [None]
